FAERS Safety Report 24848207 (Version 1)
Quarter: 2025Q1

REPORT INFORMATION
  Report Type: Spontaneous
  Country: GR (occurrence: GR)
  Receive Date: 20250116
  Receipt Date: 20250116
  Transmission Date: 20250408
  Serious: Yes (Other)
  Sender: ALEXION PHARMACEUTICALS
  Company Number: GR-AstraZeneca-CH-00784619A

PATIENT

DRUGS (4)
  1. IMFINZI [Suspect]
     Active Substance: DURVALUMAB
     Indication: Hepatocellular carcinoma
     Route: 065
  2. IMFINZI [Suspect]
     Active Substance: DURVALUMAB
     Route: 065
  3. IMFINZI [Suspect]
     Active Substance: DURVALUMAB
     Route: 065
  4. IMFINZI [Suspect]
     Active Substance: DURVALUMAB
     Route: 065

REACTIONS (2)
  - Encephalitis viral [Recovered/Resolved]
  - Epstein-Barr virus infection [Recovered/Resolved]
